FAERS Safety Report 4379216-9 (Version None)
Quarter: 2004Q2

REPORT INFORMATION
  Report Type: 
  Country: None (occurrence: None)
  Receive Date: 20040614
  Receipt Date: 20040510
  Transmission Date: 20050107
  Serious: Yes (Disabling, Other)
  Sender: FDA-Public Use
  Company Number: 2004021033

PATIENT
  Sex: Male
  Weight: 95.709 kg

DRUGS (3)
  1. ACCUPRIL [Suspect]
  2. ACETYLSALICYLIC ACID SRT [Concomitant]
  3. ROSIGLITAZONE MALEATE [Concomitant]

REACTIONS (6)
  - ARRHYTHMIA [None]
  - ARTHRALGIA [None]
  - MUSCULAR WEAKNESS [None]
  - MYALGIA [None]
  - OEDEMA [None]
  - VENTRICULAR EXTRASYSTOLES [None]
